FAERS Safety Report 8270009-9 (Version None)
Quarter: 2012Q2

REPORT INFORMATION
  Report Type: 
  Country: None (occurrence: None)
  Receive Date: 20120410
  Receipt Date: 20120404
  Transmission Date: 20120825
  Serious: Yes (Other)
  Sender: FDA-Public Use
  Company Number: US-PFIZER INC-2012085420

PATIENT
  Sex: Male

DRUGS (7)
  1. AMARYL [Suspect]
     Dosage: UNK
  2. METFORMIN HCL [Suspect]
     Dosage: UNK
  3. GARLIC [Suspect]
     Dosage: UNK
  4. ALTACE [Suspect]
     Dosage: UNK
  5. INSULIN GLARGINE [Suspect]
     Indication: TYPE 2 DIABETES MELLITUS
     Dosage: UNK
  6. INSULIN GLARGINE [Suspect]
     Dosage: 10 UNITS, AT NIGHT
     Dates: start: 20120201, end: 20120301
  7. JANUVIA [Suspect]
     Dosage: UNK

REACTIONS (6)
  - LIP SWELLING [None]
  - WEIGHT DECREASED [None]
  - SWELLING [None]
  - OEDEMA PERIPHERAL [None]
  - RASH [None]
  - PRURITUS [None]
